FAERS Safety Report 4841854-4 (Version None)
Quarter: 2005Q4

REPORT INFORMATION
  Report Type: 
  Country: None (occurrence: None)
  Receive Date: 20051130
  Receipt Date: 20051121
  Transmission Date: 20060501
  Serious: Yes (Other)
  Sender: FDA-Public Use
  Company Number: 2005PK02220

PATIENT
  Age: 491 Month
  Sex: Female
  Weight: 71 kg

DRUGS (3)
  1. CRESTOR [Suspect]
     Indication: HYPERCHOLESTEROLAEMIA
     Route: 048
     Dates: start: 20020801, end: 20050605
  2. CRESTOR [Suspect]
     Route: 048
     Dates: start: 20050606, end: 20050706
  3. CRESTOR [Suspect]
     Route: 048
     Dates: start: 20050707

REACTIONS (9)
  - ARTHRALGIA [None]
  - ASTHENIA [None]
  - COUGH [None]
  - DIZZINESS [None]
  - GENITAL PRURITUS FEMALE [None]
  - IMMUNE SYSTEM DISORDER [None]
  - MYALGIA [None]
  - SKIN DISORDER [None]
  - WEIGHT DECREASED [None]
